FAERS Safety Report 16842976 (Version 5)
Quarter: 2019Q4

REPORT INFORMATION
  Report Type: Spontaneous
  Country: IT (occurrence: IT)
  Receive Date: 20190924
  Receipt Date: 20191108
  Transmission Date: 20200122
  Serious: Yes (Hospitalization)
  Sender: FDA-Public Use
  Company Number: IT-TEVA-2019-IT-1111748

PATIENT
  Age: 52 Year
  Sex: Female
  Weight: 48 kg

DRUGS (5)
  1. CARDIOASPIRIN 100 MG COMPRESSE GASTRORESISTENTI [Concomitant]
     Active Substance: ASPIRIN
  2. OXALIPLATINO TEVA 5 MG / ML, CONCENTRATO PER SOLUZIONE PER INFUSIONE. [Suspect]
     Active Substance: OXALIPLATIN
     Indication: CHEMOTHERAPY
     Route: 042
     Dates: start: 20190719, end: 20190809
  3. CAPECITABINE MEDAC 500 MG FILM-COATED TABLETS [Concomitant]
  4. DESAMETASONE FOSFATO HOSPIRA 4 MG/ML SOLUZIONE INIETTABILE [Concomitant]
  5. TRIMETON 10 MG/1 ML SOLUZIONE INIETTABILE [Concomitant]

REACTIONS (5)
  - Infusion related reaction [Recovered/Resolved]
  - Vasospasm [Recovered/Resolved]
  - Dysaesthesia pharynx [Recovered/Resolved]
  - Paraesthesia oral [Recovered/Resolved]
  - Hypertension [Recovered/Resolved]

NARRATIVE: CASE EVENT DATE: 20190809
